FAERS Safety Report 22129033 (Version 1)
Quarter: 2023Q1

REPORT INFORMATION
  Report Type: Spontaneous
  Country: US (occurrence: US)
  Receive Date: 20230323
  Receipt Date: 20230323
  Transmission Date: 20230418
  Serious: Yes (Death, Hospitalization, Other)
  Sender: FDA-Public Use
  Company Number: US-ALKEM LABORATORIES LIMITED-US-ALKEM-2023-03047

PATIENT
  Age: 59 Year
  Sex: Male

DRUGS (1)
  1. DABIGATRAN ETEXILATE MESYLATE [Suspect]
     Active Substance: DABIGATRAN ETEXILATE MESYLATE
     Indication: Product used for unknown indication
     Dosage: 300 MILLIGRAM, QD (DAILY DOSE)
     Route: 065

REACTIONS (3)
  - Pericardial haemorrhage [Fatal]
  - Cardiac tamponade [Fatal]
  - Acute kidney injury [Fatal]
